FAERS Safety Report 10028698 (Version 2)
Quarter: 2014Q1

REPORT INFORMATION
  Report Type: Spontaneous
  Country: CA (occurrence: CA)
  Receive Date: 20140321
  Receipt Date: 20140328
  Transmission Date: 20141002
  Serious: Yes (Hospitalization)
  Sender: FDA-Public Use
  Company Number: CA-PFIZER INC-2014078110

PATIENT
  Age: 52 Year
  Sex: Male

DRUGS (4)
  1. MORPHINE SULFATE [Suspect]
     Indication: PAIN
     Dosage: 10 MG, OVER 30 MINS
     Route: 042
  2. HYDROMORPHONE [Suspect]
     Indication: PAIN
     Dosage: 12 MG, DAILY
     Route: 037
  3. HYDROMORPHONE [Suspect]
     Dosage: 12 MG, UNK OVER 30 MINS
     Route: 042
  4. HYDROMORPHONE [Suspect]
     Dosage: 2.5 MG, DAILY
     Route: 037

REACTIONS (3)
  - Hyperaesthesia [Recovering/Resolving]
  - Muscle spasms [Recovered/Resolved]
  - Toxicity to various agents [Unknown]
